FAERS Safety Report 5583082-3 (Version None)
Quarter: 2008Q1

REPORT INFORMATION
  Report Type: 
  Country: None (occurrence: None)
  Receive Date: 20080107
  Receipt Date: 20080102
  Transmission Date: 20080703
  Serious: Yes (Hospitalization)
  Sender: FDA-Public Use
  Company Number: D0055645A

PATIENT
  Sex: Female

DRUGS (2)
  1. TYKERB [Suspect]
     Route: 048
     Dates: start: 20070101
  2. XELODA [Concomitant]
     Route: 048

REACTIONS (2)
  - CEREBRAL ARTERY OCCLUSION [None]
  - THROMBOCYTHAEMIA [None]
